FAERS Safety Report 5913952-5 (Version None)
Quarter: 2008Q4

REPORT INFORMATION
  Report Type: 
  Country: None (occurrence: None)
  Receive Date: 20081009
  Receipt Date: 20081006
  Transmission Date: 20090506
  Serious: Yes (Disabling)
  Sender: FDA-Public Use
  Company Number: GB-MERCK-0810GBR00036

PATIENT
  Age: 54 Year

DRUGS (2)
  1. TIMOLOL MALEATE AND TRAVOPROST [Suspect]
     Indication: GLAUCOMA
     Route: 047
     Dates: start: 20080918, end: 20080923
  2. TIMOPTIC [Suspect]
     Route: 065

REACTIONS (4)
  - ACTIVITIES OF DAILY LIVING IMPAIRED [None]
  - DIZZINESS [None]
  - FEELING ABNORMAL [None]
  - MALAISE [None]
